FAERS Safety Report 7636896-X (Version None)
Quarter: 2011Q3

REPORT INFORMATION
  Report Type: 
  Country: None (occurrence: None)
  Receive Date: 20110726
  Receipt Date: 20110722
  Transmission Date: 20111222
  Serious: Yes (Death, Hospitalization)
  Sender: FDA-Public Use
  Company Number: KR-BAYER-2011-063634

PATIENT
  Age: 61 Year
  Sex: Male

DRUGS (2)
  1. GADAVIST [Suspect]
     Dosage: UNK
  2. GADAVIST [Suspect]
     Indication: NUCLEAR MAGNETIC RESONANCE IMAGING BRAIN
     Dosage: 10 ML, ONCE

REACTIONS (3)
  - DYSPNOEA [None]
  - SHOCK [None]
  - PULMONARY OEDEMA [None]
